FAERS Safety Report 15416564 (Version 1)
Quarter: 2018Q3

REPORT INFORMATION
  Report Type: Spontaneous
  Country: JP (occurrence: JP)
  Receive Date: 20180924
  Receipt Date: 20180924
  Transmission Date: 20181010
  Serious: Yes (Other)
  Sender: FDA-Public Use
  Company Number: JP-TEVA-2018-JP-957437

PATIENT
  Age: 8 Decade
  Sex: Male

DRUGS (1)
  1. RISEDRONATE SODIUM ? BP [Suspect]
     Active Substance: RISEDRONATE SODIUM
     Indication: PRODUCT USED FOR UNKNOWN INDICATION
     Dosage: 17.5 MILLIGRAM DAILY; UNKNOWN FREQUENCY
     Route: 048

REACTIONS (2)
  - Osteonecrosis of jaw [Unknown]
  - Oral disorder [Recovered/Resolved]
